FAERS Safety Report 4944069-4 (Version None)
Quarter: 2006Q1

REPORT INFORMATION
  Report Type: 
  Country: None (occurrence: None)
  Receive Date: 20060315
  Receipt Date: 20060216
  Transmission Date: 20060701
  Serious: Yes (Other)
  Sender: FDA-Public Use
  Company Number: DE-BRISTOL-MYERS SQUIBB COMPANY-13289731

PATIENT
  Age: 45 Year
  Sex: Male
  Weight: 84 kg

DRUGS (5)
  1. REYATAZ [Suspect]
     Indication: HIV INFECTION
     Dates: start: 20041201
  2. NORVIR [Concomitant]
     Dates: start: 20041201
  3. VIREAD [Concomitant]
     Dates: start: 20041201
  4. ZIAGEN [Concomitant]
     Dates: start: 20041201
  5. PRAVASIN [Concomitant]
     Dates: start: 20041201

REACTIONS (2)
  - CHOLELITHIASIS [None]
  - HYPERBILIRUBINAEMIA [None]
